FAERS Safety Report 18187810 (Version 1)
Quarter: 2020Q3

REPORT INFORMATION
  Report Type: Spontaneous
  Country: CN (occurrence: CN)
  Receive Date: 20200824
  Receipt Date: 20200824
  Transmission Date: 20201103
  Serious: Yes (Other)
  Sender: FDA-Public Use
  Company Number: CN-009507513-2008CHN009978

PATIENT
  Age: 62 Year
  Sex: Male

DRUGS (2)
  1. IMIPENEM AND CILASTATIN [Suspect]
     Active Substance: CILASTATIN SODIUM\IMIPENEM
     Indication: KLEBSIELLA TEST POSITIVE
     Dosage: UNK
     Dates: start: 2016, end: 2016
  2. FOSFOMYCIN [Concomitant]
     Active Substance: FOSFOMYCIN
     Indication: KLEBSIELLA TEST POSITIVE
     Dosage: UNK
     Dates: start: 2016, end: 2016

REACTIONS (2)
  - Pathogen resistance [Unknown]
  - Drug ineffective [Unknown]

NARRATIVE: CASE EVENT DATE: 2016
